FAERS Safety Report 4488394-2 (Version None)
Quarter: 2004Q4

REPORT INFORMATION
  Report Type: 
  Country: None (occurrence: None)
  Receive Date: 20041026
  Receipt Date: 20041012
  Transmission Date: 20050328
  Serious: Yes (Hospitalization)
  Sender: FDA-Public Use
  Company Number: 205523

PATIENT
  Sex: Female

DRUGS (1)
  1. AVONEX [Suspect]
     Indication: MULTIPLE SCLEROSIS
     Dosage: 30 MCG QW IM
     Route: 030
     Dates: start: 20030810

REACTIONS (8)
  - ASTHMA [None]
  - BONE PAIN [None]
  - CONTUSION [None]
  - DEPRESSION [None]
  - FATIGUE [None]
  - MULTIPLE SCLEROSIS [None]
  - PARAESTHESIA [None]
  - STRESS SYMPTOMS [None]
